FAERS Safety Report 9807822 (Version 2)
Quarter: 2014Q1

REPORT INFORMATION
  Report Type: Spontaneous
  Country: FR (occurrence: FR)
  Receive Date: 20140110
  Receipt Date: 20140121
  Transmission Date: 20141002
  Serious: Yes (Death, Other)
  Sender: FDA-Public Use
  Company Number: FR-JNJFOC-20140100723

PATIENT
  Sex: 0

DRUGS (4)
  1. DOXORUBICIN [Suspect]
     Indication: PLASMA CELL LEUKAEMIA
     Dosage: ON DAY 4
     Route: 042
  2. DEXAMETHASONE [Suspect]
     Indication: PLASMA CELL LEUKAEMIA
     Route: 065
  3. BORTEZOMIB [Suspect]
     Indication: PLASMA CELL LEUKAEMIA
     Dosage: ON DAY 1, 4, 8, 11
     Route: 065
  4. CYCLOPHOSPHAMIDE [Suspect]
     Indication: PLASMA CELL LEUKAEMIA
     Dosage: DAY 1, 8
     Route: 065

REACTIONS (4)
  - Death [Fatal]
  - Haematotoxicity [Unknown]
  - Condition aggravated [Unknown]
  - Infection [Unknown]
